FAERS Safety Report 13053793 (Version 3)
Quarter: 2017Q4

REPORT INFORMATION
  Report Type: Spontaneous
  Country: US (occurrence: US)
  Receive Date: 20161222
  Receipt Date: 20171204
  Transmission Date: 20180320
  Serious: Yes (Other)
  Sender: FDA-Public Use
  Company Number: US-ASTELLAS-2016US049943

PATIENT
  Age: 89 Year
  Sex: Female

DRUGS (2)
  1. TARCEVA [Suspect]
     Active Substance: ERLOTINIB HYDROCHLORIDE
     Route: 048
     Dates: start: 20160611
  2. TARCEVA [Suspect]
     Active Substance: ERLOTINIB HYDROCHLORIDE
     Indication: VULVAL CANCER
     Route: 065
     Dates: start: 20160608

REACTIONS (7)
  - Skin wrinkling [Unknown]
  - Diarrhoea [Not Recovered/Not Resolved]
  - Intentional product use issue [Unknown]
  - Off label use [Unknown]
  - Alopecia [Not Recovered/Not Resolved]
  - Fall [Unknown]
  - Haemorrhage [Unknown]

NARRATIVE: CASE EVENT DATE: 20161215
